FAERS Safety Report 8965902 (Version 1)
Quarter: 2012Q4

REPORT INFORMATION
  Report Type: 
  Country: IT (occurrence: IT)
  Receive Date: 20121217
  Receipt Date: 20121217
  Transmission Date: 20130627
  Serious: Yes (Hospitalization)
  Sender: FDA-Public Use
  Company Number: IT-RANBAXY-2012R1-63033

PATIENT
  Sex: Male

DRUGS (4)
  1. MORPHINE [Suspect]
     Indication: PRODUCT USED FOR UNKNOWN INDICATION
     Dosage: 0.5 mg/kg/24hrs on 4 divided doses every 6 hours.
     Route: 048
  2. MORPHINE [Suspect]
     Indication: PRODUCT USED FOR UNKNOWN INDICATION
     Dosage: 0.7 mg/kg/24hrs
     Route: 065
  3. MORPHINE [Suspect]
     Indication: PRODUCT USED FOR UNKNOWN INDICATION
     Dosage: 0.4 mg/kg/24hrs in three divided doses every 8 hours
     Route: 065
  4. ZIDOVUDINE [Concomitant]
     Indication: PROPHYLAXIS AGAINST HIV INFECTION
     Dosage: UNK
     Route: 065

REACTIONS (2)
  - Renal failure acute [Recovered/Resolved]
  - Hydronephrosis [Recovered/Resolved]
